FAERS Safety Report 7652620-9 (Version None)
Quarter: 2011Q3

REPORT INFORMATION
  Report Type: 
  Country: None (occurrence: None)
  Receive Date: 20110722
  Receipt Date: 20110222
  Transmission Date: 20111222
  Serious: Yes (Hospitalization)
  Sender: FDA-Public Use
  Company Number: UTC-005405

PATIENT
  Age: 72 Year
  Sex: Male
  Weight: 81.36 kg

DRUGS (4)
  1. TRACLEER [Concomitant]
  2. COUMADIN [Concomitant]
  3. DIURETICS (DIURETICS) [Concomitant]
  4. REMODULIN [Suspect]
     Dosage: 66.24 MCG (0.046 MCG, 1 IN 1 MIN), SUBCUTANEOUS
     Route: 058
     Dates: start: 20100312

REACTIONS (1)
  - OEDEMA [None]
